FAERS Safety Report 18201228 (Version 4)
Quarter: 2020Q4

REPORT INFORMATION
  Report Type: Report from Study
  Country: None (occurrence: CH)
  Receive Date: 20200827
  Receipt Date: 20201006
  Transmission Date: 20210113
  Serious: Yes (Hospitalization)
  Sender: FDA-Public Use
  Company Number: CH-ABBVIE-20K-151-3539182-00

PATIENT
  Age: 64 Year
  Sex: Male

DRUGS (3)
  1. DUODOPA [Suspect]
     Active Substance: CARBIDOPA\LEVODOPA
     Indication: PARKINSON^S DISEASE
     Route: 050
     Dates: start: 20150710, end: 20200303
  2. DUODOPA [Suspect]
     Active Substance: CARBIDOPA\LEVODOPA
     Dosage: MD: 10 ML, CRD: 3.6 ML/H, CRN: 0 ML/H, ED: 2.5 ML, 16 H THERAPY
     Route: 050
     Dates: start: 20200303, end: 20200617
  3. DUODOPA [Suspect]
     Active Substance: CARBIDOPA\LEVODOPA
     Dosage: MD: 10 ML, CRD: 2.7 ML/H, CRN: 0 ML/H, ED: 2.5 ML, 16 H THERAPY
     Route: 050
     Dates: start: 20200617

REACTIONS (3)
  - Disorientation [Unknown]
  - Epilepsy [Unknown]
  - Unintentional medical device removal [Recovered/Resolved]

NARRATIVE: CASE EVENT DATE: 20200822
